FAERS Safety Report 22965572 (Version 2)
Quarter: 2023Q4

REPORT INFORMATION
  Report Type: Spontaneous
  Country: US (occurrence: US)
  Receive Date: 20230921
  Receipt Date: 20231026
  Transmission Date: 20240110
  Serious: No
  Sender: FDA-Public Use
  Company Number: US-MICRO LABS LIMITED-ML2023-05319

PATIENT
  Age: 62 Year
  Sex: Female
  Weight: 81.6 kg

DRUGS (3)
  1. DORZOLAMIDE [Suspect]
     Active Substance: DORZOLAMIDE
     Indication: Open angle glaucoma
     Dosage: ONE DROP IN EACH EYE, TWICE A DAY
     Route: 047
     Dates: start: 202308
  2. DORZOLAMIDE [Suspect]
     Active Substance: DORZOLAMIDE
     Dosage: ONE DROP IN EACH EYE, TWICE A DAY
     Route: 047
     Dates: start: 20230911
  3. BROMADINE [Concomitant]
     Indication: Open angle glaucoma
     Dosage: ONE DROP IN THE DAY AND NIGHT
     Route: 047

REACTIONS (6)
  - Asthenopia [Unknown]
  - Eye irritation [Unknown]
  - Eye pain [Unknown]
  - Ocular hyperaemia [Unknown]
  - Product container issue [Unknown]
  - Product quality issue [Unknown]

NARRATIVE: CASE EVENT DATE: 20230101
